FAERS Safety Report 6891936-0 (Version None)
Quarter: 2010Q3

REPORT INFORMATION
  Report Type: 
  Country: None (occurrence: None)
  Receive Date: 20100731
  Receipt Date: 20080107
  Transmission Date: 20110219
  Serious: Yes (Other)
  Sender: FDA-Public Use
  Company Number: US-PFIZER INC-2007083744

PATIENT
  Sex: Female
  Weight: 60 kg

DRUGS (12)
  1. CAMPTOSAR [Suspect]
     Indication: COLON CANCER METASTATIC
     Dosage: 1 EVERY 2 WEEKS
     Route: 042
     Dates: start: 20070806
  2. CAMPTOSAR [Suspect]
     Dosage: 1 EVERY 2 WEEKS
     Route: 042
     Dates: start: 20070821
  3. CAMPTOSAR [Suspect]
     Dosage: 1 EVERY 2 WEEKS
     Route: 042
     Dates: start: 20070905
  4. CAMPTOSAR [Suspect]
     Dosage: 1 EVERY 2 WEEKS
     Route: 042
     Dates: start: 20071004
  5. CAMPTOSAR [Suspect]
     Dosage: 1 EVERY 2 WEEKS
     Route: 042
     Dates: start: 20071026
  6. CAMPTOSAR [Suspect]
     Dosage: 1 EVERY 2 WEEKS
     Route: 042
     Dates: start: 20071109
  7. CAMPTOSAR [Suspect]
     Dosage: 1 EVERY 2 WEEKS
     Route: 042
     Dates: start: 20071128
  8. ARANESP [Concomitant]
     Dates: start: 20070905, end: 20071004
  9. XELODA [Concomitant]
     Dates: start: 20070301
  10. PANITUMUMAB [Concomitant]
     Dates: start: 20070501
  11. FLUOROURACIL/FOLINIC ACID/OXALIPLATIN [Concomitant]
     Dates: start: 20070501
  12. AVASTIN [Concomitant]
     Dates: start: 20070801

REACTIONS (4)
  - CEREBROVASCULAR ACCIDENT [None]
  - CONFUSIONAL STATE [None]
  - HEMIPARESIS [None]
  - SPEECH DISORDER [None]
